FAERS Safety Report 9319590 (Version 11)
Quarter: 2016Q2

REPORT INFORMATION
  Report Type: Spontaneous
  Country: US (occurrence: US)
  Receive Date: 20130530
  Receipt Date: 20160425
  Transmission Date: 20160815
  Serious: Yes (Hospitalization, Other)
  Sender: FDA-Public Use
  Company Number: US-GLAXOSMITHKLINE-A1010138A

PATIENT
  Age: 51 Year
  Sex: Female

DRUGS (16)
  1. FLOLAN [Suspect]
     Active Substance: EPOPROSTENOL SODIUM
     Dosage: UNK
     Dates: start: 20020305, end: 20140828
  2. FLOLAN [Suspect]
     Active Substance: EPOPROSTENOL SODIUM
     Dosage: 33 NG/KG/MIN CO; CONCENTRATION: 45,000 NG/ML; PUMP RATE: 74 ML/DAY; VIAL STRENGTH: 1.5 MG
     Dates: start: 20141210
  3. FLOLAN [Suspect]
     Active Substance: EPOPROSTENOL SODIUM
     Dosage: 35 NG/KG/MINUTE CONTINUOUSLY
     Route: 042
     Dates: start: 20141210
  4. COUMADIN [Concomitant]
     Active Substance: WARFARIN SODIUM
  5. FLOLAN [Suspect]
     Active Substance: EPOPROSTENOL SODIUM
     Indication: PULMONARY ARTERIAL HYPERTENSION
     Dosage: 37 NG/KG/MIN CONTINUOUSLY, CONCENTRATION 45,000 NG/ML, VIAL STRENGTH 1.5 MG, 83 ML/DAY
     Route: 042
     Dates: start: 20020305, end: 20140828
  6. FLOLAN [Suspect]
     Active Substance: EPOPROSTENOL SODIUM
     Dosage: UNK
     Dates: start: 20020305, end: 20140828
  7. FLOLAN [Suspect]
     Active Substance: EPOPROSTENOL SODIUM
     Dosage: UNK
     Dates: start: 20020305, end: 20140828
  8. FLOLAN [Suspect]
     Active Substance: EPOPROSTENOL SODIUM
     Dosage: 33 DF, CO
  9. REVATIO [Concomitant]
     Active Substance: SILDENAFIL CITRATE
  10. FLOLAN [Suspect]
     Active Substance: EPOPROSTENOL SODIUM
     Dosage: 17 NG/KG/MIN, CO
  11. FLOLAN [Suspect]
     Active Substance: EPOPROSTENOL SODIUM
     Dosage: UNK
     Dates: start: 20020305, end: 20140828
  12. FLOLAN [Suspect]
     Active Substance: EPOPROSTENOL SODIUM
     Dosage: UNK
     Dates: start: 20020305, end: 20140828
  13. FLOLAN [Suspect]
     Active Substance: EPOPROSTENOL SODIUM
     Dosage: 35 NG/KG/MIN CONTINUOUSLY
     Dates: start: 20141210
  14. FLOLAN [Suspect]
     Active Substance: EPOPROSTENOL SODIUM
     Dosage: UNK
     Dates: start: 20020305, end: 20140828
  15. FLOLAN [Suspect]
     Active Substance: EPOPROSTENOL SODIUM
     Dosage: 18 NG/KG/MIN CO
     Dates: start: 201410
  16. WARFARIN [Concomitant]
     Active Substance: WARFARIN
     Dosage: UNK

REACTIONS (25)
  - Oropharyngeal pain [Unknown]
  - Catheter site haemorrhage [Unknown]
  - Central venous catheterisation [Unknown]
  - Catheter site erythema [Unknown]
  - Device infusion issue [Unknown]
  - Device related infection [Recovering/Resolving]
  - Complication associated with device [Not Recovered/Not Resolved]
  - Chills [Unknown]
  - Catheter site pain [Unknown]
  - Infusion site pain [Unknown]
  - Application site irritation [Unknown]
  - Hot flush [Unknown]
  - Anxiety [Unknown]
  - Infection [Unknown]
  - Application site odour [Not Recovered/Not Resolved]
  - Application site pruritus [Unknown]
  - Application site erythema [Unknown]
  - Pulmonary hypertension [Unknown]
  - Infusion site erythema [Unknown]
  - Infusion site pruritus [Unknown]
  - Drug dose omission [Unknown]
  - Diarrhoea [Unknown]
  - Catheter site discharge [Recovered/Resolved]
  - Hospitalisation [Unknown]
  - Pyrexia [Unknown]

NARRATIVE: CASE EVENT DATE: 2013
